FAERS Safety Report 15317627 (Version 3)
Quarter: 2018Q3

REPORT INFORMATION
  Report Type: Report from Study
  Country: US (occurrence: US)
  Receive Date: 20180824
  Receipt Date: 20180921
  Transmission Date: 20181010
  Serious: Yes (Hospitalization)
  Sender: FDA-Public Use
  Company Number: US-ACTELION-A-US2017-158127

PATIENT
  Age: 52 Year
  Sex: Female
  Weight: 62.59 kg

DRUGS (3)
  1. FLOLAN [Concomitant]
     Active Substance: EPOPROSTENOL SODIUM
  2. OPSUMIT [Suspect]
     Active Substance: MACITENTAN
     Indication: PULMONARY ARTERIAL HYPERTENSION
     Dosage: 10 MG, QD
     Route: 048
  3. ADCIRCA [Concomitant]
     Active Substance: TADALAFIL

REACTIONS (6)
  - Eye pruritus [Unknown]
  - Cholelithiasis [Unknown]
  - Tooth infection [Unknown]
  - Nasal pruritus [Unknown]
  - Catheter site infection [Unknown]
  - Allergic sinusitis [Unknown]
